FAERS Safety Report 21993452 (Version 1)
Quarter: 2023Q1

REPORT INFORMATION
  Report Type: Spontaneous
  Country: NO (occurrence: NO)
  Receive Date: 20230215
  Receipt Date: 20230215
  Transmission Date: 20230417
  Serious: Yes (Other)
  Sender: FDA-Public Use
  Company Number: None

PATIENT
  Age: 42 Year
  Sex: Female

DRUGS (1)
  1. IRON ISOMALTOSIDE 1000 [Suspect]
     Active Substance: IRON ISOMALTOSIDE 1000
     Indication: Iron deficiency
     Route: 050
     Dates: start: 20230111, end: 20230111

REACTIONS (16)
  - Hypersensitivity [Recovered/Resolved]
  - Eye haemorrhage [Unknown]
  - Nausea [Recovered/Resolved]
  - Skin warm [Unknown]
  - Cold sweat [Recovered/Resolved]
  - Diarrhoea [Unknown]
  - Muscle spasms [Recovered/Resolved]
  - Dizziness [Recovered/Resolved]
  - Vomiting [Recovered/Resolved]
  - Dry skin [Unknown]
  - Cough [Unknown]
  - Abdominal pain [Unknown]
  - Malaise [Unknown]
  - Hyperhidrosis [Recovered/Resolved]
  - Back pain [Unknown]
  - Similar reaction on previous exposure to drug [Recovered/Resolved]

NARRATIVE: CASE EVENT DATE: 20230111
